FAERS Safety Report 21491143 (Version 1)
Quarter: 2022Q4

REPORT INFORMATION
  Report Type: Spontaneous
  Country: NL (occurrence: NL)
  Receive Date: 20221021
  Receipt Date: 20221021
  Transmission Date: 20230113
  Serious: Yes (Disabling)
  Sender: FDA-Public Use
  Company Number: None

PATIENT
  Sex: Female
  Weight: 58 kg

DRUGS (2)
  1. LYRICA [Suspect]
     Active Substance: PREGABALIN
     Indication: Depression
     Dosage: 150 MG, 2X/DAY (TWICE A DAY)
     Route: 065
     Dates: start: 20220801, end: 202208
  2. LYRICA [Suspect]
     Active Substance: PREGABALIN
     Indication: Anxiety

REACTIONS (3)
  - Therapeutic response decreased [Recovered/Resolved]
  - Product quality issue [Recovered/Resolved]
  - Product substitution issue [Recovered/Resolved]
